FAERS Safety Report 13655016 (Version 2)
Quarter: 2017Q2

REPORT INFORMATION
  Report Type: Spontaneous
  Country: FR (occurrence: FR)
  Receive Date: 20170615
  Receipt Date: 20170620
  Transmission Date: 20170830
  Serious: Yes (Other)
  Sender: FDA-Public Use
  Company Number: FR-PFIZER INC-2017261556

PATIENT
  Age: 54 Year
  Sex: Male

DRUGS (9)
  1. PAROXETINE. [Suspect]
     Active Substance: PAROXETINE
     Indication: ANXIETY DISORDER
     Dosage: 20 MG, DAILY
     Route: 048
     Dates: start: 2016
  2. DEPAKINE [Suspect]
     Active Substance: VALPROATE SODIUM
     Dosage: 2500 MG, DAILY
     Route: 048
  3. VALIUM [Suspect]
     Active Substance: DIAZEPAM
     Indication: EPILEPSY
  4. VALIUM [Suspect]
     Active Substance: DIAZEPAM
     Indication: EPILEPSY
  5. RAMIPRIL. [Suspect]
     Active Substance: RAMIPRIL
     Indication: HYPERTENSION
     Dosage: 2.5 MG, DAILY
     Route: 048
     Dates: start: 20161012
  6. VALIUM [Suspect]
     Active Substance: DIAZEPAM
     Indication: MYOCLONIC EPILEPSY
     Dosage: 10 MG, UNK
     Route: 030
  7. DEPAKINE [Suspect]
     Active Substance: VALPROATE SODIUM
     Indication: EPILEPSY
     Dosage: 1000 MG, 2X/DAY
     Route: 048
  8. KEPPRA [Suspect]
     Active Substance: LEVETIRACETAM
     Indication: EPILEPSY
     Dosage: UNK, 2X/DAY (1500 MG MORNING AND 1000 MG EVENING)
     Route: 048
  9. VALIUM [Suspect]
     Active Substance: DIAZEPAM
     Indication: MYOCLONIC EPILEPSY
     Dosage: 5 MG, AS NEEDED (IF MYOCLONUS BURST)
     Route: 048

REACTIONS (3)
  - Tremor [Unknown]
  - Dysgraphia [Unknown]
  - Fine motor skill dysfunction [Unknown]

NARRATIVE: CASE EVENT DATE: 2013
